FAERS Safety Report 4959671-3 (Version None)
Quarter: 2006Q1

REPORT INFORMATION
  Report Type: 
  Country: None (occurrence: None)
  Receive Date: 20060331
  Receipt Date: 20060320
  Transmission Date: 20060701
  Serious: Yes (Other)
  Sender: FDA-Public Use
  Company Number: PHNU2006DE01402

PATIENT
  Age: 80 Year
  Sex: Female

DRUGS (4)
  1. VOLTAREN [Suspect]
     Indication: POLYARTHRITIS
     Dosage: 1 DF, BID
     Route: 048
  2. VOLTAREN [Suspect]
     Dosage: 1 DF, BID
     Route: 048
  3. RANITIDINE [Concomitant]
  4. TICLID [Concomitant]

REACTIONS (4)
  - CONDITION AGGRAVATED [None]
  - IRRITABLE BOWEL SYNDROME [None]
  - SPINAL DISORDER [None]
  - STOMACH DISCOMFORT [None]
